FAERS Safety Report 8289141-9 (Version None)
Quarter: 2012Q2

REPORT INFORMATION
  Report Type: 
  Country: None (occurrence: None)
  Receive Date: 20120412
  Receipt Date: 20120402
  Transmission Date: 20120825
  Serious: Yes (Death, Hospitalization, Other)
  Sender: FDA-Public Use
  Company Number: 2009AL004454

PATIENT
  Age: 79 Year
  Sex: Female

DRUGS (40)
  1. DIGOXIN [Suspect]
     Indication: PRODUCT USED FOR UNKNOWN INDICATION
     Dosage: 0.25 MG, QD, PO
     Route: 048
     Dates: start: 20000321, end: 20070721
  2. GLUCOPHAGE [Concomitant]
  3. ZETIA [Concomitant]
  4. AMARYL [Concomitant]
  5. LISINOPRIL [Concomitant]
  6. SPIRONOLACTONE [Concomitant]
  7. XANAX [Concomitant]
  8. CALCIUM CARBONATE [Concomitant]
  9. TOBRTADEX [Concomitant]
  10. WARFARIN SODIUM [Concomitant]
  11. CAPTOPRIL [Concomitant]
  12. COREG [Concomitant]
  13. VYTORIN [Concomitant]
  14. FUROSEMIDE [Concomitant]
  15. ACTOS [Concomitant]
  16. CIMETIDINE [Concomitant]
  17. HUMALOG [Concomitant]
  18. ZOCOR [Concomitant]
  19. SENOKOT [Concomitant]
  20. OXYCODONE HCL [Concomitant]
  21. TRICOR [Concomitant]
  22. LANTUS [Concomitant]
  23. METOPROLOL TARTRATE [Concomitant]
  24. CAPOTEN [Concomitant]
  25. REZULIN [Concomitant]
  26. LIPITOR [Concomitant]
  27. COUMADIN [Concomitant]
  28. DEMEROL [Concomitant]
  29. FENOFIBRATE [Concomitant]
  30. INSPRA [Concomitant]
  31. LANTUS [Concomitant]
  32. FLONASE [Concomitant]
  33. LEVAQUIN [Concomitant]
  34. ALPRAZOLAM [Concomitant]
  35. AVELOX [Concomitant]
  36. CELEXA [Concomitant]
  37. NIASPAN [Concomitant]
  38. AVANDIA [Concomitant]
  39. PRILOSEC [Concomitant]
  40. INSULIN [Concomitant]

REACTIONS (49)
  - IRON DEFICIENCY ANAEMIA [None]
  - HYPERHIDROSIS [None]
  - ECONOMIC PROBLEM [None]
  - HYPOTENSION [None]
  - FATIGUE [None]
  - RENAL FAILURE CHRONIC [None]
  - HYPOGLYCAEMIA [None]
  - NEPHROSCLEROSIS [None]
  - SURGERY [None]
  - ASTHENIA [None]
  - DECREASED APPETITE [None]
  - BUNDLE BRANCH BLOCK LEFT [None]
  - RENAL ATROPHY [None]
  - CARDIAC FAILURE CONGESTIVE [None]
  - HYPOVOLAEMIA [None]
  - FALL [None]
  - HYPERCHOLESTEROLAEMIA [None]
  - UNEVALUABLE EVENT [None]
  - ATRIOVENTRICULAR BLOCK COMPLETE [None]
  - DEHYDRATION [None]
  - PLEURAL EFFUSION [None]
  - SMALL INTESTINAL OBSTRUCTION [None]
  - CONCUSSION [None]
  - EXTRASYSTOLES [None]
  - RENAL FAILURE [None]
  - HYPERKALAEMIA [None]
  - TOXICITY TO VARIOUS AGENTS [None]
  - BLOOD POTASSIUM INCREASED [None]
  - CARDIOMYOPATHY [None]
  - DIABETES MELLITUS [None]
  - GASTRITIS [None]
  - DIVERTICULUM [None]
  - CARDIAC FAILURE [None]
  - RENAL FAILURE ACUTE [None]
  - CARDIOMEGALY [None]
  - HAEMODIALYSIS [None]
  - PULMONARY OEDEMA [None]
  - CONFUSIONAL STATE [None]
  - INTERNATIONAL NORMALISED RATIO INCREASED [None]
  - FACE INJURY [None]
  - FACIAL BONES FRACTURE [None]
  - MULTIPLE INJURIES [None]
  - HYPOPHAGIA [None]
  - GENERAL PHYSICAL HEALTH DETERIORATION [None]
  - HYPERGLYCAEMIA [None]
  - URINARY TRACT INFECTION [None]
  - LOSS OF CONSCIOUSNESS [None]
  - ELECTROCARDIOGRAM QRS COMPLEX PROLONGED [None]
  - TACHYCARDIA [None]
